FAERS Safety Report 5253929-9 (Version None)
Quarter: 2007Q1

REPORT INFORMATION
  Report Type: 
  Country: None (occurrence: None)
  Receive Date: 20070228
  Receipt Date: 20070228
  Transmission Date: 20070707
  Serious: Yes (Life-Threatening, Hospitalization, Other)
  Sender: FDA-Public Use
  Company Number: None

PATIENT
  Sex: Female
  Weight: 63.5036 kg

DRUGS (1)
  1. ATRIPLA [Suspect]
     Indication: HIV INFECTION
     Dosage: ONE TABLET  DAILY PO
     Route: 048
     Dates: start: 20061228, end: 20070116

REACTIONS (4)
  - HAEMODIALYSIS [None]
  - HYPERSENSITIVITY [None]
  - NEPHRITIS ALLERGIC [None]
  - RENAL FAILURE ACUTE [None]
